FAERS Safety Report 8385968-3 (Version None)
Quarter: 2012Q2

REPORT INFORMATION
  Report Type: 
  Country: None (occurrence: None)
  Receive Date: 20120525
  Receipt Date: 20120515
  Transmission Date: 20120825
  Serious: Yes (Other)
  Sender: FDA-Public Use
  Company Number: CA-JNJFOC-20120513365

PATIENT
  Sex: Male
  Weight: 72 kg

DRUGS (9)
  1. PLAQUENIL [Concomitant]
     Route: 065
  2. PERCOCET [Concomitant]
     Dosage: AS NEEDED
     Route: 065
  3. METHOTREXATE [Concomitant]
     Route: 065
  4. VITAMIN D [Concomitant]
     Route: 065
  5. REMICADE [Suspect]
     Indication: RHEUMATOID ARTHRITIS
     Dosage: INDUCTION PHASE
     Route: 042
     Dates: start: 20120404
  6. CALCIUM [Concomitant]
     Route: 065
  7. PANTOPRAZOLE [Concomitant]
     Route: 065
  8. ARAVA [Concomitant]
     Route: 065
  9. FOLIC ACID [Concomitant]
     Route: 065

REACTIONS (2)
  - FALL [None]
  - RIB FRACTURE [None]
